FAERS Safety Report 6864160-5 (Version None)
Quarter: 2010Q3

REPORT INFORMATION
  Report Type: 
  Country: None (occurrence: None)
  Receive Date: 20100721
  Receipt Date: 20080316
  Transmission Date: 20110219
  Serious: Yes (Other)
  Sender: FDA-Public Use
  Company Number: US-PFIZER INC-2008025185

PATIENT
  Sex: Female
  Weight: 90.7 kg

DRUGS (5)
  1. CHANTIX [Suspect]
     Indication: SMOKING CESSATION THERAPY
     Dates: start: 20071001, end: 20071201
  2. BYETTA [Concomitant]
  3. METFORMIN HYDROCHLORIDE/SITAGLIPTIN [Concomitant]
  4. TRICOR [Concomitant]
  5. CYMBALTA [Concomitant]

REACTIONS (1)
  - SUICIDAL IDEATION [None]
